FAERS Safety Report 5100036-1 (Version None)
Quarter: 2006Q3

REPORT INFORMATION
  Report Type: 
  Country: None (occurrence: None)
  Receive Date: 20060908
  Receipt Date: 20060831
  Transmission Date: 20061208
  Serious: Yes (Hospitalization, Other)
  Sender: FDA-Public Use
  Company Number: CA-SANOFI-SYNTHELABO-A01200607200

PATIENT
  Age: 86 Year
  Sex: Male

DRUGS (13)
  1. IRON SUPPLEMENT [Concomitant]
     Dosage: UNK
     Route: 048
  2. CASODEX [Concomitant]
     Dosage: UNK
     Route: 048
     Dates: start: 20060605
  3. PANTOPRAZOLE SODIUM [Concomitant]
     Dosage: UNK
     Route: 048
  4. SUPEUDOL [Concomitant]
     Dosage: UNK
     Route: 048
  5. TYLENOL [Concomitant]
     Indication: ARTHRITIS
     Dosage: UNK
     Route: 048
  6. FLOMAX [Concomitant]
     Indication: PROSTATE EXAMINATION ABNORMAL
     Dosage: UNK
     Route: 048
  7. SYNTHROID [Concomitant]
     Dosage: UNK
     Route: 048
  8. COMBIVENT [Concomitant]
     Dosage: UNK
     Route: 048
  9. FLOVENT [Concomitant]
     Dosage: UNK
     Route: 048
  10. SODIUM CHLORIDE [Concomitant]
     Dosage: UNK
     Route: 048
  11. NORVASC [Concomitant]
     Route: 048
  12. DOCUSATE SODIUM [Concomitant]
     Route: 048
  13. ELIGARD [Suspect]
     Indication: PROSTATE CANCER
     Route: 058
     Dates: start: 20060705

REACTIONS (3)
  - HAEMOPTYSIS [None]
  - PULMONARY EMBOLISM [None]
  - PULMONARY HAEMORRHAGE [None]
